FAERS Safety Report 9214805 (Version 2)
Quarter: 2013Q2

REPORT INFORMATION
  Report Type: Spontaneous
  Country: GB (occurrence: GB)
  Receive Date: 20130405
  Receipt Date: 20130412
  Transmission Date: 20140414
  Serious: Yes (Hospitalization)
  Sender: FDA-Public Use
  Company Number: GB-ABBOTT-13X-167-1072233-00

PATIENT
  Age: 44 Year
  Sex: Female

DRUGS (8)
  1. HYTRIN [Suspect]
     Indication: PRODUCT USED FOR UNKNOWN INDICATION
     Dates: start: 20050818
  2. VALPROATE SODIUM [Suspect]
     Indication: PRODUCT USED FOR UNKNOWN INDICATION
  3. IBUPROFEN [Suspect]
     Indication: ABDOMINAL PAIN
     Route: 048
     Dates: start: 20041204, end: 20041204
  4. DICLOFENAC [Suspect]
     Indication: ABDOMINAL PAIN
     Route: 054
     Dates: start: 20121202, end: 20121202
  5. BENZATROPINE [Suspect]
     Indication: PRODUCT USED FOR UNKNOWN INDICATION
  6. CLOZAPINE [Suspect]
     Indication: PRODUCT USED FOR UNKNOWN INDICATION
  7. CEFTRIAXONE [Concomitant]
     Indication: PRODUCT USED FOR UNKNOWN INDICATION
     Dates: start: 20041203, end: 20041203
  8. ONDANSETRON [Concomitant]
     Indication: PRODUCT USED FOR UNKNOWN INDICATION
     Dates: start: 20041203, end: 20041203

REACTIONS (6)
  - Renal failure acute [Unknown]
  - Renal tubular necrosis [Recovered/Resolved]
  - Pneumonia [Unknown]
  - Drug interaction [Unknown]
  - Myoclonus [Unknown]
  - Diarrhoea [Unknown]
